FAERS Safety Report 15764409 (Version 1)
Quarter: 2018Q4

REPORT INFORMATION
  Report Type: Spontaneous
  Country: GB (occurrence: GB)
  Receive Date: 20181227
  Receipt Date: 20181227
  Transmission Date: 20190205
  Serious: Yes (Other)
  Sender: FDA-Public Use
  Company Number: GB-TEVA-2018-GB-991805

PATIENT
  Age: 13 Year
  Sex: Male
  Weight: 81 kg

DRUGS (4)
  1. PHENOXYMETHYLPENICILLIN [Suspect]
     Active Substance: PENICILLIN V
     Dosage: 40 ML DAILY;
     Dates: start: 20180907, end: 20180912
  2. MIGRALEVE [Concomitant]
     Active Substance: ACETAMINOPHEN\BUCLIZINE HYDROCHLORIDE\CODEINE
     Indication: MIGRAINE
     Dosage: 1 PINK TABLET AT ONSET, 1 YELLOW TA...
     Dates: start: 20180509
  3. VENTOLIN [Concomitant]
     Active Substance: ALBUTEROL SULFATE
     Dosage: 2-4 PUFFS 4 HOURLY.
     Dates: start: 20161219
  4. CASSIA [Concomitant]
     Dosage: 1-2 AT NIGHT
     Dates: start: 20180112

REACTIONS (1)
  - Lip swelling [Recovered/Resolved]
